FAERS Safety Report 4742090-2 (Version None)
Quarter: 2005Q3

REPORT INFORMATION
  Report Type: 
  Country: None (occurrence: None)
  Receive Date: 20050808
  Receipt Date: 20050725
  Transmission Date: 20060218
  Serious: Yes (Hospitalization)
  Sender: FDA-Public Use
  Company Number: S05-FRA-02691-01

PATIENT
  Age: 84 Year
  Sex: Female

DRUGS (8)
  1. CITALOPRAM HYDROBROMIDE [Suspect]
     Indication: DEPRESSION
     Dosage: 20 MG BID PO
     Route: 048
     Dates: end: 20050606
  2. CITALOPRAM HYDROBROMIDE [Suspect]
     Indication: DEPRESSION
     Dosage: 20 MG QD PO
     Route: 048
     Dates: start: 20050607
  3. ASPEGIC 1000 [Suspect]
     Dosage: 1 PO
     Route: 048
  4. XANAX [Suspect]
     Indication: ANXIETY
     Dosage: 3 QD PO
     Route: 048
     Dates: end: 20050606
  5. XANAX [Suspect]
     Indication: ANXIETY
     Dosage: 0.25 MG QD PO
     Route: 048
     Dates: start: 20050607
  6. TRANDATE [Suspect]
     Indication: HYPERTENSION
     Dosage: 100 MG BID PO
     Route: 048
  7. NOCTRAN 10 [Suspect]
     Indication: SLEEP DISORDER
     Dosage: 10 MG QD PO
     Route: 048
     Dates: end: 20050603
  8. TRIMETAZIDINE [Suspect]
     Dosage: 20 MG PO
     Route: 048
     Dates: end: 20050603

REACTIONS (4)
  - BRONCHITIS [None]
  - DIZZINESS [None]
  - FALL [None]
  - RHABDOMYOLYSIS [None]
